FAERS Safety Report 10202407 (Version 2)
Quarter: 2014Q2

REPORT INFORMATION
  Report Type: Spontaneous
  Country: US (occurrence: US)
  Receive Date: 20140528
  Receipt Date: 20140613
  Transmission Date: 20141212
  Serious: Yes (Hospitalization)
  Sender: FDA-Public Use
  Company Number: US-B.I. PHARMACEUTICALS,INC./RIDGEFIELD-2014-BI-22863BP

PATIENT
  Age: 56 Year
  Sex: Female
  Weight: 78 kg

DRUGS (10)
  1. MIRAPEX [Suspect]
     Indication: RESTLESS LEGS SYNDROME
     Dosage: 0.25 MG
     Route: 048
     Dates: start: 2011
  2. ADVAIR [Concomitant]
     Route: 065
  3. ALBUTEROL [Concomitant]
     Route: 065
  4. CELEXA [Concomitant]
     Route: 065
  5. ESTRADIOL [Concomitant]
     Route: 065
  6. ETODOLAC [Concomitant]
     Route: 065
  7. LISINOPRIL [Concomitant]
     Route: 065
  8. TIZANIDINE [Concomitant]
     Route: 065
  9. TRAMADOL [Concomitant]
     Route: 065
  10. VITAMIN D [Concomitant]
     Route: 065

REACTIONS (2)
  - Diverticulum [Recovered/Resolved]
  - Diverticulum [Not Recovered/Not Resolved]
